FAERS Safety Report 4946254-4 (Version None)
Quarter: 2006Q1

REPORT INFORMATION
  Report Type: 
  Country: None (occurrence: None)
  Receive Date: 20060317
  Receipt Date: 20060307
  Transmission Date: 20060701
  Serious: Yes (Death, Hospitalization)
  Sender: FDA-Public Use
  Company Number: CH-SANOFI-SYNTHELABO-F01200600695

PATIENT
  Sex: Male
  Weight: 85 kg

DRUGS (3)
  1. ELOXATIN [Suspect]
     Indication: RECTAL CANCER
     Route: 042
     Dates: start: 20060220, end: 20060220
  2. XELODA [Suspect]
     Route: 048
     Dates: start: 20060220, end: 20060306
  3. DOMPERIDONE [Concomitant]
     Dosage: 4 DF
     Route: 048
     Dates: start: 20060220, end: 20060306

REACTIONS (3)
  - DIARRHOEA [None]
  - SEPSIS [None]
  - STOMATITIS [None]
